FAERS Safety Report 16781238 (Version 1)
Quarter: 2019Q3

REPORT INFORMATION
  Report Type: Report from Study
  Country: CA (occurrence: CA)
  Receive Date: 20190906
  Receipt Date: 20190906
  Transmission Date: 20191005
  Serious: Yes (Other)
  Sender: FDA-Public Use
  Company Number: PHHY2018CA028018

PATIENT
  Age: 73 Year
  Sex: Male

DRUGS (10)
  1. COSENTYX [Suspect]
     Active Substance: SECUKINUMAB
     Dosage: 450 MG, QMO
     Route: 058
  2. LIPITOR [Concomitant]
     Active Substance: ATORVASTATIN CALCIUM
     Indication: HYPERTENSION
     Route: 065
  3. COSENTYX [Suspect]
     Active Substance: SECUKINUMAB
     Dosage: 300 MG, QMO
     Route: 058
     Dates: start: 20190313
  4. PSORALEN [Concomitant]
     Active Substance: PSORALEN
     Indication: PSORIASIS
     Dosage: 1 OT, UNK
     Route: 065
  5. VASELIIN [Concomitant]
     Indication: PSORIASIS
     Dosage: 1 DF, QD
     Route: 061
  6. COSENTYX [Suspect]
     Active Substance: SECUKINUMAB
     Indication: PSORIASIS
     Dosage: 300 MG, QW
     Route: 058
     Dates: start: 20180618
  7. COSENTYX [Suspect]
     Active Substance: SECUKINUMAB
     Dosage: 300 MG, QMO
     Route: 058
     Dates: start: 20181113
  8. METHOTREXATE. [Concomitant]
     Active Substance: METHOTREXATE
     Indication: PSORIASIS
     Dosage: UNK UNK, QD
     Route: 048
     Dates: start: 1983
  9. COSENTYX [Suspect]
     Active Substance: SECUKINUMAB
     Dosage: 300 MG, QMO
     Route: 058
     Dates: start: 201807
  10. COSENTYX [Suspect]
     Active Substance: SECUKINUMAB
     Dosage: 450 MG, QMO
     Route: 058
     Dates: start: 20190513

REACTIONS (8)
  - Heart rate increased [Unknown]
  - Hepatic cancer [Unknown]
  - Pruritus [Not Recovered/Not Resolved]
  - Brain cancer metastatic [Unknown]
  - Lung neoplasm malignant [Unknown]
  - Psoriasis [Not Recovered/Not Resolved]
  - Skin plaque [Recovering/Resolving]
  - Product prescribing error [Unknown]

NARRATIVE: CASE EVENT DATE: 20180618
